FAERS Safety Report 15953751 (Version 1)
Quarter: 2019Q1

REPORT INFORMATION
  Report Type: Spontaneous
  Country: FR (occurrence: FR)
  Receive Date: 20190212
  Receipt Date: 20190212
  Transmission Date: 20190417
  Serious: Yes (Hospitalization)
  Sender: FDA-Public Use
  Company Number: FR-009507513-1902FRA002584

PATIENT
  Age: 67 Year
  Sex: Female
  Weight: 55 kg

DRUGS (9)
  1. KEYTRUDA [Suspect]
     Active Substance: PEMBROLIZUMAB
     Indication: SQUAMOUS CELL CARCINOMA
     Dosage: 2MG/KG EVERY 3 WEEKS
     Route: 041
     Dates: start: 20180411
  2. COVERAM [Concomitant]
     Active Substance: AMLODIPINE\PERINDOPRIL
  3. DIFFU-K [Concomitant]
     Active Substance: POTASSIUM CHLORIDE
  4. LANSOPRAZOLE. [Concomitant]
     Active Substance: LANSOPRAZOLE
  5. LYSANXIA [Concomitant]
     Active Substance: PRAZEPAM
  6. LEVOTHYROX [Concomitant]
     Active Substance: LEVOTHYROXINE
  7. NOCTAMIDE [Concomitant]
     Active Substance: LORMETAZEPAM
  8. BISOPROLOL FUMARATE. [Concomitant]
     Active Substance: BISOPROLOL FUMARATE
  9. FENOFIBRATE. [Concomitant]
     Active Substance: FENOFIBRATE

REACTIONS (1)
  - Diabetes mellitus [Recovered/Resolved with Sequelae]

NARRATIVE: CASE EVENT DATE: 20181106
